FAERS Safety Report 8200869-9 (Version None)
Quarter: 2012Q1

REPORT INFORMATION
  Report Type: 
  Country: None (occurrence: None)
  Receive Date: 20120312
  Receipt Date: 20110607
  Transmission Date: 20120608
  Serious: No
  Sender: FDA-Public Use
  Company Number: US-ABBOTT-11P-163-0731562-00

PATIENT
  Sex: Female
  Weight: 103.97 kg

DRUGS (1)
  1. LUPRON DEPOT [Suspect]
     Indication: ENDOMETRIOSIS
     Dates: start: 20110520, end: 20110520

REACTIONS (4)
  - PRURITUS GENERALISED [None]
  - RASH MACULO-PAPULAR [None]
  - LIP SWELLING [None]
  - HYPERSENSITIVITY [None]
